FAERS Safety Report 21024383 (Version 1)
Quarter: 2022Q2

REPORT INFORMATION
  Report Type: Spontaneous
  Country: CA (occurrence: CA)
  Receive Date: 20220629
  Receipt Date: 20220629
  Transmission Date: 20220720
  Serious: Yes (Hospitalization)
  Sender: FDA-Public Use
  Company Number: CA-ELI_LILLY_AND_COMPANY-CA202206010902

PATIENT
  Age: 53 Year
  Sex: Male

DRUGS (9)
  1. OLANZAPINE [Suspect]
     Active Substance: OLANZAPINE
     Indication: Cognitive disorder
     Dosage: UNK, UNKNOWN
     Route: 065
  2. BENZTROPINE [Suspect]
     Active Substance: BENZTROPINE
     Indication: Cognitive disorder
     Dosage: UNK, UNKNOWN
     Route: 065
  3. CHLORPROMAZINE HYDROCHLORIDE [Suspect]
     Active Substance: CHLORPROMAZINE HYDROCHLORIDE
     Indication: Cognitive disorder
     Dosage: UNK, UNKNOWN
     Route: 065
  4. FLUVOXAMINE [Suspect]
     Active Substance: FLUVOXAMINE
     Indication: Cognitive disorder
     Dosage: 100 MG, 1 EVERY 1 DAYS
     Route: 065
  5. RISPERIDONE [Suspect]
     Active Substance: RISPERIDONE
     Indication: Cognitive disorder
     Dosage: 1 MG, 2 EVERY 1 DAYS
     Route: 065
  6. TOLTERODINE [Suspect]
     Active Substance: TOLTERODINE
     Indication: Cognitive disorder
     Dosage: 4 MG, 1 EVERY 1 DAYS
     Route: 065
  7. ZOPICLONE [Suspect]
     Active Substance: ZOPICLONE
     Indication: Disinhibition
     Dosage: 7.5 MG, 2 EVERY 1 DAYS
     Route: 065
  8. ZOPICLONE [Suspect]
     Active Substance: ZOPICLONE
     Indication: Cognitive disorder
     Dosage: 15 MG, 4 EVERY 1 DAYS
     Route: 065
  9. ZOPICLONE [Suspect]
     Active Substance: ZOPICLONE
     Indication: Aggression
     Dosage: 15 MG, 2 EVERY 1 DAYS
     Route: 065

REACTIONS (2)
  - Drug ineffective [Unknown]
  - Off label use [Unknown]
